FAERS Safety Report 6084521-4 (Version None)
Quarter: 2009Q1

REPORT INFORMATION
  Report Type: 
  Country: None (occurrence: None)
  Receive Date: 20090219
  Receipt Date: 20090206
  Transmission Date: 20090719
  Serious: Yes (Other)
  Sender: FDA-Public Use
  Company Number: FR-PFIZER INC-2009167563

PATIENT

DRUGS (3)
  1. SULFASALAZINE [Suspect]
     Indication: POLYARTHRITIS
     Dosage: 2 G, FREQUENCY: DAILY
  2. PIROXICAM [Concomitant]
     Indication: POLYARTHRITIS
     Dosage: 20 MG, FREQUENCY: DAILY
  3. PREDNISONE [Concomitant]
     Indication: POLYARTHRITIS
     Dosage: 6 MG, FRQUENCY: DAILY

REACTIONS (1)
  - NEUROTOXICITY [None]
